FAERS Safety Report 9706650 (Version 1)
Quarter: 2013Q4

REPORT INFORMATION
  Report Type: Spontaneous
  Country: JP (occurrence: JP)
  Receive Date: 20131125
  Receipt Date: 20131125
  Transmission Date: 20140711
  Serious: Yes (Hospitalization)
  Sender: FDA-Public Use
  Company Number: JP-ROCHE-1304812

PATIENT
  Age: 81 Year
  Sex: Female

DRUGS (1)
  1. ROCEPHIN [Suspect]
     Indication: URINARY TRACT INFECTION
     Route: 041
     Dates: start: 20131107, end: 20131111

REACTIONS (1)
  - Oculomucocutaneous syndrome [Not Recovered/Not Resolved]
